FAERS Safety Report 5992159-X (Version None)
Quarter: 2008Q4

REPORT INFORMATION
  Report Type: 
  Country: None (occurrence: None)
  Receive Date: 20081202
  Receipt Date: 20071218
  Transmission Date: 20090506
  Serious: Yes (Other)
  Sender: FDA-Public Use
  Company Number: WAES 0706USA00450

PATIENT
  Age: 69 Year
  Sex: Female

DRUGS (1)
  1. FOSAMAX [Suspect]
     Indication: OSTEOPOROSIS
     Dosage: 70 MG/PO
     Route: 048
     Dates: start: 20050520, end: 20060730

REACTIONS (7)
  - BONE DISORDER [None]
  - DENTAL CARIES [None]
  - GINGIVAL DISORDER [None]
  - HEART RATE IRREGULAR [None]
  - INFECTION [None]
  - OSTEONECROSIS [None]
  - PERIODONTAL DISEASE [None]
